FAERS Safety Report 10954064 (Version 3)
Quarter: 2017Q2

REPORT INFORMATION
  Report Type: Spontaneous
  Country: US (occurrence: US)
  Receive Date: 20150325
  Receipt Date: 20170609
  Transmission Date: 20170829
  Serious: Yes (Hospitalization)
  Sender: FDA-Public Use
  Company Number: US-ELI_LILLY_AND_COMPANY-US201503006174

PATIENT
  Age: 80 Year
  Sex: Female

DRUGS (2)
  1. ADCIRCA [Suspect]
     Active Substance: TADALAFIL
     Dosage: 40 MG, QD
     Route: 048
  2. ADCIRCA [Suspect]
     Active Substance: TADALAFIL
     Indication: PULMONARY ARTERIAL HYPERTENSION
     Dosage: UNK, UNKNOWN
     Route: 048

REACTIONS (5)
  - Fall [Unknown]
  - Dyspnoea [Unknown]
  - Abdominal pain upper [Unknown]
  - Therapy cessation [Unknown]
  - Hip fracture [Unknown]

NARRATIVE: CASE EVENT DATE: 201503
